FAERS Safety Report 6670931-0 (Version None)
Quarter: 2010Q2

REPORT INFORMATION
  Report Type: 
  Country: None (occurrence: None)
  Receive Date: 20100407
  Receipt Date: 20100329
  Transmission Date: 20101027
  Serious: Yes (Other)
  Sender: FDA-Public Use
  Company Number: US-ALEXION-A201000369

PATIENT

DRUGS (1)
  1. SOLIRIS [Suspect]
     Dosage: UNK

REACTIONS (1)
  - BONE MARROW TRANSPLANT [None]
